FAERS Safety Report 9361630 (Version 3)
Quarter: 2013Q4

REPORT INFORMATION
  Report Type: Report from Study
  Country: JP (occurrence: JP)
  Receive Date: 20130621
  Receipt Date: 20131113
  Transmission Date: 20140711
  Serious: Yes (Other)
  Sender: FDA-Public Use
  Company Number: JP-ASTRAZENECA-2013SE47369

PATIENT
  Age: 46 Year
  Sex: Female

DRUGS (2)
  1. SYMBICORT TURBUHALER [Suspect]
     Indication: ASTHMA
     Dosage: MAINTENANCE DOSAGE 2 DF TWICE DAILY
     Route: 055
     Dates: start: 20121207, end: 20121213
  2. SINGULAIR [Concomitant]
     Indication: ASTHMA
     Route: 048
     Dates: start: 20121213

REACTIONS (1)
  - Chest discomfort [Recovering/Resolving]
